FAERS Safety Report 6424855-4 (Version None)
Quarter: 2009Q4

REPORT INFORMATION
  Report Type: 
  Country: None (occurrence: None)
  Receive Date: 20091029
  Receipt Date: 20091015
  Transmission Date: 20100525
  Serious: Yes (Other)
  Sender: FDA-Public Use
  Company Number: 20090478

PATIENT
  Age: 65 Year
  Sex: Female

DRUGS (2)
  1. CEFTRIAXONE [Suspect]
  2. LISINOPRIL [Suspect]

REACTIONS (8)
  - CHOLESTASIS [None]
  - GAMMA-GLUTAMYLTRANSFERASE INCREASED [None]
  - HEPATIC FIBROSIS [None]
  - HEPATIC NECROSIS [None]
  - JAUNDICE CHOLESTATIC [None]
  - JAUNDICE HEPATOCELLULAR [None]
  - LIVER INJURY [None]
  - SEPSIS [None]
